FAERS Safety Report 4686694-4 (Version None)
Quarter: 2005Q2

REPORT INFORMATION
  Report Type: 
  Country: None (occurrence: None)
  Receive Date: 20050608
  Receipt Date: 20050531
  Transmission Date: 20051028
  Serious: Yes (Disabling)
  Sender: FDA-Public Use
  Company Number: 2005082149

PATIENT
  Age: 75 Year
  Sex: Female
  Weight: 64 kg

DRUGS (6)
  1. ATORVASTATIN CALCIUM [Suspect]
     Indication: CARDIOVERSION
     Dosage: 40 MG, ORAL
     Route: 048
     Dates: start: 20050214, end: 20050320
  2. AMIODARONE HCL [Suspect]
     Indication: CARDIOVERSION
     Dosage: 300 MG, ORAL
     Route: 048
     Dates: start: 20050214
  3. DIGOXIN [Concomitant]
  4. BENDROFLUAZIDE (BENDROFLUMETHIAZIDE) [Concomitant]
  5. GAVISCON [Concomitant]
  6. WARFARIN SODIUM [Concomitant]

REACTIONS (2)
  - ASTHENIA [None]
  - MUSCLE ATROPHY [None]
